FAERS Safety Report 5754768-2 (Version None)
Quarter: 2008Q2

REPORT INFORMATION
  Report Type: 
  Country: None (occurrence: None)
  Receive Date: 20080527
  Receipt Date: 20080508
  Transmission Date: 20081010
  Serious: Yes (Life-Threatening, Hospitalization)
  Sender: FDA-Public Use
  Company Number: 2008PV034328

PATIENT
  Age: 67 Year
  Sex: Male

DRUGS (15)
  1. SYMLIN [Suspect]
     Indication: TYPE 2 DIABETES MELLITUS
     Dosage: SC
     Route: 058
     Dates: start: 20080122
  2. SYMLIN [Suspect]
     Indication: TYPE 2 DIABETES MELLITUS
     Dosage: SC
     Route: 058
     Dates: start: 20060910, end: 20080122
  3. HUMALOG [Concomitant]
  4. LANTUS [Concomitant]
  5. NIASPAN [Concomitant]
  6. ALTACE [Concomitant]
  7. TOPROL-XL [Concomitant]
  8. LIPITOR [Concomitant]
  9. AMANTADINE HCL [Concomitant]
  10. SINEMET CR [Concomitant]
  11. NEUPRO [Concomitant]
  12. ASPIRIN [Concomitant]
  13. ANDROGEL [Concomitant]
  14. FISH OIL [Concomitant]
  15. VITAMIN CAP [Concomitant]

REACTIONS (28)
  - ANAEMIA [None]
  - ASPIRATION [None]
  - BACK PAIN [None]
  - CHILLS [None]
  - CONSTIPATION [None]
  - DISEASE COMPLICATION [None]
  - DIZZINESS [None]
  - DYSPEPSIA [None]
  - DYSURIA [None]
  - FALL [None]
  - FATIGUE [None]
  - HAEMATEMESIS [None]
  - HYPOTENSION [None]
  - INFLUENZA [None]
  - LOCALISED INFECTION [None]
  - NAUSEA [None]
  - NEUROPATHIC ARTHROPATHY [None]
  - PNEUMONIA [None]
  - PULMONARY EMBOLISM [None]
  - PULMONARY OEDEMA [None]
  - RENAL FAILURE ACUTE [None]
  - RESPIRATORY FAILURE [None]
  - SEPSIS [None]
  - STAPHYLOCOCCAL INFECTION [None]
  - THROMBOCYTOPENIA [None]
  - UNRESPONSIVE TO STIMULI [None]
  - URINARY HESITATION [None]
  - VOMITING [None]
